FAERS Safety Report 10962814 (Version 4)
Quarter: 2022Q1

REPORT INFORMATION
  Report Type: Spontaneous
  Country: CA (occurrence: CA)
  Receive Date: 20150327
  Receipt Date: 20220220
  Transmission Date: 20220423
  Serious: Yes (Death, Hospitalization, Other)
  Sender: FDA-Public Use
  Company Number: CA-BAXTER-2015BAX015824

PATIENT
  Age: 9 Year
  Sex: Male

DRUGS (52)
  1. CYCLOPHOSPHAMIDE [Suspect]
     Active Substance: CYCLOPHOSPHAMIDE
     Indication: B-cell lymphoma
     Route: 042
  2. CYCLOPHOSPHAMIDE [Suspect]
     Active Substance: CYCLOPHOSPHAMIDE
     Indication: Bone marrow conditioning regimen
     Dosage: DOSAGE FORM: NOT SPECIFIED
     Route: 042
  3. CYCLOPHOSPHAMIDE [Suspect]
     Active Substance: CYCLOPHOSPHAMIDE
     Indication: Familial haemophagocytic lymphohistiocytosis
     Route: 042
  4. CYCLOPHOSPHAMIDE [Suspect]
     Active Substance: CYCLOPHOSPHAMIDE
     Indication: Stem cell transplant
     Route: 065
  5. CYCLOPHOSPHAMIDE [Suspect]
     Active Substance: CYCLOPHOSPHAMIDE
     Route: 042
  6. IFEX [Suspect]
     Active Substance: IFOSFAMIDE
     Indication: B-cell lymphoma
     Route: 042
  7. IFEX [Suspect]
     Active Substance: IFOSFAMIDE
     Route: 065
  8. IFEX [Suspect]
     Active Substance: IFOSFAMIDE
     Route: 065
  9. IFEX [Suspect]
     Active Substance: IFOSFAMIDE
     Route: 065
  10. IFEX [Suspect]
     Active Substance: IFOSFAMIDE
     Route: 042
  11. IFEX [Suspect]
     Active Substance: IFOSFAMIDE
     Route: 065
  12. NEUPOGEN [Suspect]
     Active Substance: FILGRASTIM
     Indication: B-cell lymphoma
     Route: 065
  13. NEUPOGEN [Suspect]
     Active Substance: FILGRASTIM
     Dosage: SOLUTION INTRAVENOUS
     Route: 065
  14. RITUXAN [Suspect]
     Active Substance: RITUXIMAB
     Indication: B-cell lymphoma
     Route: 065
  15. RITUXAN [Suspect]
     Active Substance: RITUXIMAB
     Route: 042
  16. BUSULFEX [Suspect]
     Active Substance: BUSULFAN
     Indication: B-cell lymphoma
     Route: 042
  17. BUSULFEX [Suspect]
     Active Substance: BUSULFAN
     Indication: Bone marrow conditioning regimen
     Dosage: DOSAGE FORM :SOLUTION  INTRAVENOUS
     Route: 065
  18. BUSULFEX [Suspect]
     Active Substance: BUSULFAN
     Indication: Bone marrow conditioning regimen
     Dosage: DOSAGE FORM: NOT SPECIFIED
     Route: 042
  19. CARBOPLATIN [Suspect]
     Active Substance: CARBOPLATIN
     Indication: B-cell lymphoma
     Dosage: DOSAGE FORM: INTRAVENOUS INFUSION
     Route: 042
  20. CARBOPLATIN [Suspect]
     Active Substance: CARBOPLATIN
     Route: 042
  21. CISPLATIN [Suspect]
     Active Substance: CISPLATIN
     Indication: B-cell lymphoma
     Dosage: DOSAGE FORM SOLUTION INTRAVENOUS
     Route: 042
  22. DOXORUBICIN [Suspect]
     Active Substance: DOXORUBICIN
     Indication: B-cell lymphoma
     Dosage: FORM OF ADMIN: INTRAVENOUS INFUSION
     Route: 042
  23. ETOPOSIDE [Suspect]
     Active Substance: ETOPOSIDE
     Indication: B-cell lymphoma
     Route: 065
  24. ETOPOSIDE [Suspect]
     Active Substance: ETOPOSIDE
     Dosage: 250 MILILITER PER SQUARE METRE
     Route: 065
  25. FLUDARABINE PHOSPHATE [Suspect]
     Active Substance: FLUDARABINE PHOSPHATE
     Indication: B-cell lymphoma
     Dosage: DOSAGE FORM: SOLUTION INTRAVENOUS
     Route: 065
  26. FLUDARABINE PHOSPHATE [Suspect]
     Active Substance: FLUDARABINE PHOSPHATE
     Indication: Bone marrow conditioning regimen
  27. FLUDARABINE PHOSPHATE [Suspect]
     Active Substance: FLUDARABINE PHOSPHATE
     Indication: Stem cell transplant
  28. PREDNISONE [Suspect]
     Active Substance: PREDNISONE
     Indication: B-cell lymphoma
     Route: 065
  29. VINCRISTINE [Suspect]
     Active Substance: VINCRISTINE
     Indication: B-cell lymphoma
     Route: 065
  30. ZEVALIN [Suspect]
     Active Substance: IBRITUMOMAB TIUXETAN
     Indication: B-cell lymphoma
     Route: 065
  31. ALEMTUZUMAB [Suspect]
     Active Substance: ALEMTUZUMAB
     Indication: Stem cell transplant
     Route: 042
  32. ALEMTUZUMAB [Suspect]
     Active Substance: ALEMTUZUMAB
     Indication: Familial haemophagocytic lymphohistiocytosis
     Route: 042
  33. ALEMTUZUMAB [Suspect]
     Active Substance: ALEMTUZUMAB
     Indication: Bone marrow conditioning regimen
     Route: 065
  34. CISPLATIN [Suspect]
     Active Substance: CISPLATIN
     Indication: B-cell lymphoma
     Route: 065
  35. CYTARABINE [Suspect]
     Active Substance: CYTARABINE
     Indication: Familial haemophagocytic lymphohistiocytosis
     Route: 065
  36. CYTARABINE [Suspect]
     Active Substance: CYTARABINE
     Route: 065
  37. DOXORUBICIN HYDROCHLORIDE [Suspect]
     Active Substance: DOXORUBICIN HYDROCHLORIDE
     Indication: B-cell lymphoma
     Route: 042
  38. DOXORUBICIN HYDROCHLORIDE [Suspect]
     Active Substance: DOXORUBICIN HYDROCHLORIDE
     Route: 042
  39. FLUDARABINE PHOSPHATE [Suspect]
     Active Substance: FLUDARABINE PHOSPHATE
     Indication: Stem cell transplant
     Route: 065
  40. FLUDARABINE PHOSPHATE [Suspect]
     Active Substance: FLUDARABINE PHOSPHATE
     Indication: B-cell lymphoma
     Route: 065
  41. FLUDARABINE PHOSPHATE [Suspect]
     Active Substance: FLUDARABINE PHOSPHATE
     Indication: Bone marrow conditioning regimen
     Route: 065
  42. GRANULOCYTE COLONY-STIMULATING FACTOR NOS [Suspect]
     Active Substance: GRANULOCYTE COLONY-STIMULATING FACTOR NOS
     Indication: B-cell lymphoma
     Dosage: DOSAGE FORM: NOT SPECIFIED
     Route: 065
  43. METHOTREXATE [Suspect]
     Active Substance: METHOTREXATE
     Indication: Familial haemophagocytic lymphohistiocytosis
     Dosage: DOSAGE FORM: NOT SPECIFIED
     Route: 065
  44. VINCRISTINE SULFATE [Suspect]
     Active Substance: VINCRISTINE SULFATE
     Indication: B-cell lymphoma
     Dosage: DOSAGE FORM: NOT SPECIFIED
     Route: 065
  45. RITUXIMAB [Suspect]
     Active Substance: RITUXIMAB
     Indication: B-cell lymphoma
     Route: 042
  46. RITUXIMAB [Suspect]
     Active Substance: RITUXIMAB
     Route: 042
  47. RITUXIMAB [Suspect]
     Active Substance: RITUXIMAB
     Route: 065
  48. RITUXIMAB [Suspect]
     Active Substance: RITUXIMAB
     Route: 065
  49. FILGRASTIM [Suspect]
     Active Substance: FILGRASTIM
     Indication: B-cell lymphoma
     Route: 065
  50. IFOSFAMIDE [Suspect]
     Active Substance: IFOSFAMIDE
     Indication: B-cell lymphoma
     Route: 042
  51. HYDROCORTISONE [Concomitant]
     Active Substance: HYDROCORTISONE
     Indication: Product used for unknown indication
     Dosage: DOSAGE FORM: NOT SPECIFIED
     Route: 065
  52. METHYLPREDNISOLONE ACETATE [Concomitant]
     Active Substance: METHYLPREDNISOLONE ACETATE
     Indication: Product used for unknown indication
     Dosage: DOSAGE FORM: NOT SPECIFIED
     Route: 065

REACTIONS (10)
  - Intentional product use issue [Fatal]
  - Off label use [Fatal]
  - Product use in unapproved indication [Fatal]
  - Herpes simplex [Fatal]
  - Respiratory disorder [Fatal]
  - Mucosal inflammation [Fatal]
  - Progressive multifocal leukoencephalopathy [Fatal]
  - Meningitis tuberculous [Fatal]
  - Sepsis [Fatal]
  - Respiratory failure [Fatal]
